FAERS Safety Report 9931030 (Version 1)
Quarter: 2014Q1

REPORT INFORMATION
  Report Type: Report from Study
  Country: US (occurrence: US)
  Receive Date: 20140227
  Receipt Date: 20140227
  Transmission Date: 20141002
  Serious: Yes (Hospitalization)
  Sender: FDA-Public Use
  Company Number: PHEH2013US026770

PATIENT
  Sex: Female

DRUGS (2)
  1. TASIGNA [Suspect]
  2. SPRYCEL//DASATINIB [Concomitant]
     Dosage: UNK UKN, UNK

REACTIONS (1)
  - Pleural effusion [Unknown]
